FAERS Safety Report 11096176 (Version 1)
Quarter: 2015Q2

REPORT INFORMATION
  Report Type: Spontaneous
  Country: US (occurrence: None)
  Receive Date: 20150506
  Receipt Date: 20150506
  Transmission Date: 20150821
  Serious: Yes (Disabling, Other)
  Sender: FDA-Public Use
  Company Number: None

PATIENT
  Age: 52 Year
  Sex: Female
  Weight: 83.92 kg

DRUGS (15)
  1. CARISOPRODOL. [Concomitant]
     Active Substance: CARISOPRODOL
  2. NIACIN. [Concomitant]
     Active Substance: NIACIN
  3. CALCIUM [Concomitant]
     Active Substance: CALCIUM
  4. ASPRIAN [Concomitant]
  5. SIMVASTAN [Concomitant]
  6. VIATUM D [Concomitant]
  7. LORAZAPAM [Concomitant]
     Active Substance: LORAZEPAM
  8. LORCET [Concomitant]
     Active Substance: ACETAMINOPHEN\HYDROCODONE BITARTRATE
  9. FORTEO [Suspect]
     Active Substance: TERIPARATIDE
     Indication: OSTEOPOROSIS
     Dosage: INJECTION PEN ONE  INJECTION PE.  GIVEN INTO/UNDER THE SKIN
     Dates: start: 20140926, end: 20150127
  10. MORPHINE [Concomitant]
     Active Substance: MORPHINE
  11. STADOL [Concomitant]
     Active Substance: BUTORPHANOL TARTRATE
  12. NADADOL [Concomitant]
  13. EFFEROR [Concomitant]
  14. AMBALODIPINE [Concomitant]
  15. LORSARTAN [Concomitant]

REACTIONS (4)
  - Tooth fracture [None]
  - Depression [None]
  - Tooth disorder [None]
  - Adverse drug reaction [None]

NARRATIVE: CASE EVENT DATE: 20140922
